FAERS Safety Report 6202887-9 (Version None)
Quarter: 2009Q2

REPORT INFORMATION
  Report Type: 
  Country: None (occurrence: None)
  Receive Date: 20090520
  Receipt Date: 20090507
  Transmission Date: 20091009
  Serious: Yes (Other)
  Sender: FDA-Public Use
  Company Number: 2009AL001424

PATIENT
  Age: 50 Year
  Sex: Male

DRUGS (4)
  1. METFORMIN HCL [Suspect]
     Indication: DIABETES MELLITUS
     Dosage: 2 DF; BID; PO
     Route: 048
     Dates: start: 20090303, end: 20090303
  2. METFORMIN HYDROCHLORIDE [Suspect]
     Dosage: 500 MG; BID; PO
     Route: 048
  3. SODIUM CHLORIDE [Concomitant]
  4. GLICLAZIDE [Concomitant]

REACTIONS (2)
  - DERMATITIS BULLOUS [None]
  - INFECTION [None]
